FAERS Safety Report 7386994-3 (Version None)
Quarter: 2011Q1

REPORT INFORMATION
  Report Type: 
  Country: None (occurrence: None)
  Receive Date: 20110331
  Receipt Date: 20110322
  Transmission Date: 20110831
  Serious: Yes (Hospitalization)
  Sender: FDA-Public Use
  Company Number: CH-ASTRAZENECA-2011SE16543

PATIENT
  Age: 33 Year
  Sex: Female

DRUGS (14)
  1. TRAMAL [Concomitant]
     Dates: end: 20101103
  2. GYNOTARDYFERON [Concomitant]
     Dates: end: 20101103
  3. PREDNISONE [Concomitant]
     Dates: end: 20101103
  4. PARACETAMOL [Suspect]
     Dosage: 2 DF
     Route: 048
     Dates: start: 20101117, end: 20101117
  5. MESTINON [Concomitant]
     Dosage: 500MG DAILY,AT 18:00;90MG 6 TIMES DAILY,AT 06:00,08:00,10:00,12:00,14:00,16:00; 80MG DAILY, AT 20:00
     Dates: end: 20101103
  6. VENTOLIN [Concomitant]
     Dates: end: 20101103
  7. NEXIUM [Suspect]
     Route: 048
     Dates: end: 20101103
  8. LISINOPRIL [Suspect]
     Route: 048
     Dates: end: 20101103
  9. SYMBICORT [Concomitant]
     Dosage: 200/6 BID
     Dates: end: 20101103
  10. SIRDALUD [Suspect]
     Route: 048
     Dates: end: 20101103
  11. NORVASC [Suspect]
     Route: 048
     Dates: end: 20101103
  12. ASPIRIN [Concomitant]
     Dates: end: 20101103
  13. ELTROXIN [Concomitant]
     Dates: end: 20101103
  14. DAFALGAN [Suspect]
     Route: 048
     Dates: end: 20101103

REACTIONS (1)
  - HEPATIC ENZYME INCREASED [None]
